FAERS Safety Report 18284404 (Version 1)
Quarter: 2020Q3

REPORT INFORMATION
  Report Type: Spontaneous
  Country: CH (occurrence: CH)
  Receive Date: 20200918
  Receipt Date: 20200918
  Transmission Date: 20201103
  Serious: Yes (Other)
  Sender: FDA-Public Use
  Company Number: CH-MYLANLABS-2020M1079093

PATIENT
  Sex: Male

DRUGS (3)
  1. TOREM (TORASEMIDE) [Suspect]
     Active Substance: TORSEMIDE
     Indication: BLOOD PRESSURE ABNORMAL
     Dosage: UNK
  2. TOREM (TORASEMIDE) [Suspect]
     Active Substance: TORSEMIDE
     Dosage: UNK
  3. ALDACTONE [Suspect]
     Active Substance: SPIRONOLACTONE
     Indication: PRODUCT USED FOR UNKNOWN INDICATION
     Dosage: UNK

REACTIONS (2)
  - Fine motor skill dysfunction [Unknown]
  - Pulmonary embolism [Unknown]
